FAERS Safety Report 7901128-1 (Version None)
Quarter: 2011Q4

REPORT INFORMATION
  Report Type: 
  Country: None (occurrence: None)
  Receive Date: 20111108
  Receipt Date: 20111104
  Transmission Date: 20120403
  Serious: Yes (Hospitalization, Other)
  Sender: FDA-Public Use
  Company Number: JP-PFIZER INC-2011166302

PATIENT
  Age: 55 Year
  Sex: Male
  Weight: 80 kg

DRUGS (5)
  1. LYRICA [Suspect]
     Indication: POST HERPETIC NEURALGIA
     Dosage: 75 MG, 2X/DAY
     Route: 048
     Dates: start: 20110708, end: 20110711
  2. RINESTERON [Concomitant]
     Indication: DRUG ERUPTION
     Dosage: 0.5 MG, 3X/DAY
     Route: 048
     Dates: start: 20110711, end: 20110713
  3. XYZAL [Concomitant]
     Indication: DRUG ERUPTION
     Dosage: 5 MG, 1X/DAY
     Route: 048
     Dates: start: 20110711, end: 20110713
  4. ACYCLOVIR [Concomitant]
     Dosage: UNK
     Route: 041
  5. FAMVIR [Concomitant]
     Indication: HERPES ZOSTER
     Dosage: 500 MG, 3X/DAY
     Route: 048
     Dates: start: 20110630, end: 20110706

REACTIONS (1)
  - ACUTE GENERALISED EXANTHEMATOUS PUSTULOSIS [None]
